FAERS Safety Report 8096171-9 (Version None)
Quarter: 2012Q1

REPORT INFORMATION
  Report Type: 
  Country: None (occurrence: None)
  Receive Date: 20120131
  Receipt Date: 20120126
  Transmission Date: 20120608
  Serious: Yes (Other)
  Sender: FDA-Public Use
  Company Number: CZ-GLAXOSMITHKLINE-B0778290A

PATIENT
  Sex: Female

DRUGS (6)
  1. SERTRALINE HYDROCHLORIDE [Concomitant]
  2. LAPATINIB [Suspect]
     Indication: BREAST CANCER
     Dosage: 1250MG PER DAY
     Route: 048
     Dates: start: 20110910
  3. LEXAURIN [Concomitant]
  4. MEDROL [Concomitant]
  5. XELODA [Concomitant]
  6. IBANDRONATE SODIUM [Concomitant]

REACTIONS (3)
  - HEPATOTOXICITY [None]
  - DIARRHOEA [None]
  - SKIN TOXICITY [None]
